FAERS Safety Report 14118966 (Version 1)
Quarter: 2017Q4

REPORT INFORMATION
  Report Type: Spontaneous
  Country: US (occurrence: None)
  Receive Date: 20171023
  Receipt Date: 20171023
  Transmission Date: 20180321
  Serious: Yes (Hospitalization)
  Sender: FDA-Public Use
  Company Number: None

PATIENT
  Age: 56 Year
  Sex: Male

DRUGS (13)
  1. BRILINTA [Concomitant]
     Active Substance: TICAGRELOR
  2. VANCOMYCIN [Concomitant]
     Active Substance: VANCOMYCIN
  3. ORENCIA [Suspect]
     Active Substance: ABATACEPT
     Indication: PSORIASIS
     Route: 058
     Dates: start: 20170808
  4. ATORVASTATIN [Concomitant]
     Active Substance: ATORVASTATIN
  5. MULTIVITAMIN TAB MEN [Concomitant]
  6. PANTOPRAZOLE [Concomitant]
     Active Substance: PANTOPRAZOLE
  7. BUPROPION HCL [Concomitant]
     Active Substance: BUPROPION HYDROCHLORIDE
  8. AMLODIPINE [Concomitant]
     Active Substance: AMLODIPINE BESYLATE
  9. BUPROPION. [Concomitant]
     Active Substance: BUPROPION
  10. PREDNISONE. [Concomitant]
     Active Substance: PREDNISONE
  11. ASPIRIN. [Concomitant]
     Active Substance: ASPIRIN
  12. RAMIPRIL. [Concomitant]
     Active Substance: RAMIPRIL
  13. RANEXA [Concomitant]
     Active Substance: RANOLAZINE

REACTIONS (2)
  - Infection [None]
  - Therapy cessation [None]
